FAERS Safety Report 21314453 (Version 1)
Quarter: 2022Q3

REPORT INFORMATION
  Report Type: Spontaneous
  Country: US (occurrence: US)
  Receive Date: 20220909
  Receipt Date: 20220909
  Transmission Date: 20221027
  Serious: Yes (Other)
  Sender: FDA-Public Use
  Company Number: US-TEVA-2022-US-2071983

PATIENT
  Age: 64 Year
  Sex: Female
  Weight: 120.2 kg

DRUGS (2)
  1. DICLOXACILLIN [Suspect]
     Active Substance: DICLOXACILLIN
     Indication: Infection
     Dosage: 750 MILLIGRAM DAILY;
     Route: 065
     Dates: start: 202110, end: 202208
  2. ZYVOX [Suspect]
     Active Substance: LINEZOLID
     Indication: Infection
     Dosage: 1200 MILLIGRAM DAILY;
     Route: 065
     Dates: start: 20220819

REACTIONS (7)
  - Infection [Unknown]
  - Skin graft rejection [Unknown]
  - Impaired healing [Unknown]
  - Mycobacterium test positive [Unknown]
  - Blister [Unknown]
  - Drug ineffective [Unknown]
  - Product availability issue [Unknown]

NARRATIVE: CASE EVENT DATE: 20210101
